FAERS Safety Report 16757922 (Version 1)
Quarter: 2019Q3

REPORT INFORMATION
  Report Type: Spontaneous
  Country: IT (occurrence: IT)
  Receive Date: 20190830
  Receipt Date: 20190830
  Transmission Date: 20191005
  Serious: Yes (Hospitalization)
  Sender: FDA-Public Use
  Company Number: IT-SA-2019SA230776

PATIENT
  Age: 56 Year
  Sex: Male

DRUGS (1)
  1. STILNOX [Suspect]
     Active Substance: ZOLPIDEM TARTRATE
     Indication: DRUG ABUSE
     Dosage: 150 MG, TOTAL
     Route: 048
     Dates: start: 20190605, end: 20190605

REACTIONS (6)
  - Epilepsy [Recovered/Resolved]
  - Confusional state [Recovered/Resolved]
  - Tongue biting [Recovered/Resolved]
  - Drug abuse [Unknown]
  - Tonic clonic movements [Recovered/Resolved]
  - Disorientation [Recovered/Resolved]

NARRATIVE: CASE EVENT DATE: 20190605
